FAERS Safety Report 7455328-8 (Version None)
Quarter: 2011Q2

REPORT INFORMATION
  Report Type: 
  Country: None (occurrence: None)
  Receive Date: 20110503
  Receipt Date: 20110421
  Transmission Date: 20111010
  Serious: Yes (Hospitalization)
  Sender: FDA-Public Use
  Company Number: IT-SANOFI-AVENTIS-2011SA024686

PATIENT
  Age: 69 Year
  Sex: Male

DRUGS (1)
  1. MULTAQ [Suspect]
     Indication: ATRIAL FLUTTER
     Route: 048
     Dates: start: 20110301, end: 20110407

REACTIONS (4)
  - DYSPNOEA [None]
  - PULMONARY OEDEMA [None]
  - OFF LABEL USE [None]
  - CARDIAC FAILURE [None]
